FAERS Safety Report 5614868-4 (Version None)
Quarter: 2008Q1

REPORT INFORMATION
  Report Type: 
  Country: None (occurrence: None)
  Receive Date: 20080131
  Receipt Date: 20080116
  Transmission Date: 20080703
  Serious: Yes (Other)
  Sender: FDA-Public Use
  Company Number: 8029277

PATIENT
  Sex: Female

DRUGS (3)
  1. KEPPRA [Suspect]
     Dates: start: 20060101
  2. KEPPRA [Suspect]
     Dosage: 250 MG 2/D
     Route: 064
  3. KEPPRA [Suspect]
     Dosage: 500 MG 2/D
     Route: 064

REACTIONS (6)
  - CAESAREAN SECTION [None]
  - DRUG EXPOSURE DURING PREGNANCY [None]
  - OPERATIVE HAEMORRHAGE [None]
  - PARTIAL SEIZURES [None]
  - PROCEDURAL COMPLICATION [None]
  - UTERINE RUPTURE [None]
